FAERS Safety Report 13988468 (Version 2)
Quarter: 2017Q3

REPORT INFORMATION
  Report Type: Spontaneous
  Country: PE (occurrence: PE)
  Receive Date: 20170919
  Receipt Date: 20170927
  Transmission Date: 20171128
  Serious: Yes (Life-Threatening, Other)
  Sender: FDA-Public Use
  Company Number: PE-PFIZER INC-2017397064

PATIENT
  Age: 37 Year
  Sex: Female

DRUGS (2)
  1. ZELDOX [Suspect]
     Active Substance: ZIPRASIDONE
     Indication: BIPOLAR I DISORDER
  2. ZELDOX [Suspect]
     Active Substance: ZIPRASIDONE
     Indication: SCHIZOPHRENIA
     Dosage: UNK
     Dates: start: 2006

REACTIONS (8)
  - Delusion [Unknown]
  - Fear [Unknown]
  - Feeling of despair [Unknown]
  - Emotional disorder [Unknown]
  - Insomnia [Unknown]
  - Hallucination, auditory [Unknown]
  - Hallucination, visual [Unknown]
  - Shock [Unknown]
